FAERS Safety Report 8513518-7 (Version None)
Quarter: 2012Q3

REPORT INFORMATION
  Report Type: 
  Country: None (occurrence: None)
  Receive Date: 20120717
  Receipt Date: 20070828
  Transmission Date: 20120928
  Serious: No
  Sender: FDA-Public Use
  Company Number: 2007BI018270

PATIENT
  Age: 55 Year
  Sex: Female

DRUGS (3)
  1. AVONEX [Suspect]
     Route: 030
     Dates: start: 20050815
  2. AVONEX [Suspect]
     Indication: MULTIPLE SCLEROSIS
     Route: 030
     Dates: start: 20050805
  3. AVONEX [Suspect]
     Route: 030
     Dates: start: 20120610

REACTIONS (2)
  - ARTHRITIS [None]
  - INFLUENZA LIKE ILLNESS [None]
